FAERS Safety Report 9162869 (Version 2)
Quarter: 2013Q1

REPORT INFORMATION
  Report Type: Spontaneous
  Country: NL (occurrence: NL)
  Receive Date: 20130314
  Receipt Date: 20130325
  Transmission Date: 20140127
  Serious: Yes (Death)
  Sender: FDA-Public Use
  Company Number: NL-009507513-1303NLD005239

PATIENT
  Age: 44 Year
  Sex: Female
  Weight: 60 kg

DRUGS (1)
  1. MARVELON [Suspect]
     Dosage: 1 DF, 1 TIMES PER 1 CYCLICAL
     Route: 048
     Dates: start: 1990

REACTIONS (1)
  - Cerebral haemorrhage [Fatal]
